FAERS Safety Report 12676265 (Version 1)
Quarter: 2016Q3

REPORT INFORMATION
  Report Type: Spontaneous
  Country: US (occurrence: None)
  Receive Date: 20160822
  Receipt Date: 20160822
  Transmission Date: 20161109
  Serious: Yes (Hospitalization)
  Sender: FDA-Public Use
  Company Number: None

PATIENT
  Age: 69 Year
  Sex: Female

DRUGS (11)
  1. SYNTHROID [Concomitant]
     Active Substance: LEVOTHYROXINE SODIUM
  2. LETROZOLE. [Concomitant]
     Active Substance: LETROZOLE
  3. CALCIUM [Concomitant]
     Active Substance: CALCIUM
  4. VITAMIN D3 [Concomitant]
     Active Substance: CHOLECALCIFEROL
  5. MULTI-VIT [Concomitant]
     Active Substance: VITAMINS
  6. CETIRIZINE [Concomitant]
     Active Substance: CETIRIZINE HYDROCHLORIDE
  7. MIRALAX [Concomitant]
     Active Substance: POLYETHYLENE GLYCOL 3350
  8. PANTOPRAZOLE [Concomitant]
     Active Substance: PANTOPRAZOLE SODIUM
  9. IBRANCE [Suspect]
     Active Substance: PALBOCICLIB
     Indication: INVASIVE LOBULAR BREAST CARCINOMA
     Dosage: 1 CAPSULE (125MG) QD 21 DAYS ON/ 7 OFF ORAL
     Route: 048
     Dates: start: 20160725
  10. LUTEIN [Concomitant]
     Active Substance: LUTEIN
  11. PRESERVATIO AREDS [Concomitant]

REACTIONS (3)
  - Colitis [None]
  - Muscle spasms [None]
  - Dysgeusia [None]

NARRATIVE: CASE EVENT DATE: 201605
